FAERS Safety Report 9755019 (Version 1)
Quarter: 2013Q4

REPORT INFORMATION
  Report Type: Spontaneous
  Country: US (occurrence: US)
  Receive Date: 20131213
  Receipt Date: 20131213
  Transmission Date: 20140711
  Serious: Yes (Death)
  Sender: FDA-Public Use
  Company Number: US-PFIZER INC-2013357543

PATIENT
  Age: 24 Year
  Sex: Male

DRUGS (3)
  1. VIAGRA [Suspect]
     Indication: ERECTILE DYSFUNCTION
     Dosage: UNK
  2. CIALIS [Interacting]
     Indication: ERECTILE DYSFUNCTION
     Dosage: UNK
  3. ALCOHOL [Interacting]

REACTIONS (2)
  - Alcohol interaction [Fatal]
  - Myocardial infarction [Fatal]
